FAERS Safety Report 6590729-1 (Version None)
Quarter: 2010Q1

REPORT INFORMATION
  Report Type: 
  Country: None (occurrence: None)
  Receive Date: 20100203
  Receipt Date: 20090930
  Transmission Date: 20100710
  Serious: No
  Sender: FDA-Public Use
  Company Number: 2009-00638

PATIENT
  Age: 62 Year
  Sex: Male
  Weight: 68.0396 kg

DRUGS (1)
  1. COLD REMEDY  ORAL MIST [Suspect]
     Dosage: ONE DOSE - ONE DOSE
     Dates: start: 20090930, end: 20090930

REACTIONS (1)
  - AGEUSIA [None]
